FAERS Safety Report 25472372 (Version 1)
Quarter: 2025Q2

REPORT INFORMATION
  Report Type: Spontaneous
  Country: SA (occurrence: SA)
  Receive Date: 20250624
  Receipt Date: 20250624
  Transmission Date: 20250717
  Serious: Yes (Death, Other)
  Sender: UNITED THERAPEUTICS
  Company Number: SA-UNITED THERAPEUTICS-UNT-2025-021529

PATIENT

DRUGS (1)
  1. TYVASO [Suspect]
     Active Substance: TREPROSTINIL
     Indication: Product used for unknown indication
     Dates: start: 20241016, end: 20241106

REACTIONS (2)
  - Cardio-respiratory arrest [Fatal]
  - Respiratory failure [Unknown]

NARRATIVE: CASE EVENT DATE: 20240101
